FAERS Safety Report 5308706-7 (Version None)
Quarter: 2007Q2

REPORT INFORMATION
  Report Type: 
  Country: None (occurrence: None)
  Receive Date: 20070426
  Receipt Date: 20070424
  Transmission Date: 20071010
  Serious: Yes (Other)
  Sender: FDA-Public Use
  Company Number: FR-GLAXOSMITHKLINE-B0467702A

PATIENT
  Age: 75 Year
  Sex: Female

DRUGS (4)
  1. AVANDAMET [Suspect]
     Dosage: 2TAB PER DAY
     Route: 048
     Dates: start: 20061222
  2. FUROSEMIDE [Concomitant]
     Indication: HYPERTENSION
     Route: 065
  3. DIFFU-K [Concomitant]
     Indication: HYPERTENSION
     Route: 065
     Dates: start: 20061222
  4. SOPROL [Concomitant]
     Indication: HYPERTENSION
     Route: 065
     Dates: end: 20070201

REACTIONS (2)
  - ATRIAL FIBRILLATION [None]
  - DYSPNOEA [None]
